FAERS Safety Report 6774246-1 (Version None)
Quarter: 2010Q2

REPORT INFORMATION
  Report Type: 
  Country: None (occurrence: None)
  Receive Date: 20100617
  Receipt Date: 20100608
  Transmission Date: 20101027
  Serious: Yes (Other)
  Sender: FDA-Public Use
  Company Number: ES-PFIZER INC-2010071971

PATIENT
  Age: 62 Year
  Sex: Female

DRUGS (6)
  1. CHAMPIX [Suspect]
     Indication: SMOKING CESSATION THERAPY
     Dosage: 0.5 MG, 1X/DAY
     Route: 048
     Dates: start: 20100419, end: 20100401
  2. CHAMPIX [Suspect]
     Dosage: 1 MG, 1X/DAY
     Dates: start: 20100401, end: 20100426
  3. CHAMPIX [Suspect]
     Dosage: 2 MG, 1X/DAY
     Dates: start: 20100426, end: 20100501
  4. CHAMPIX [Suspect]
     Dosage: 1 MG, 1X/DAY
     Dates: start: 20100501
  5. NEOBRUFEN [Concomitant]
     Indication: OSTEOARTHRITIS
     Dosage: UNK
  6. LORAZEPAM [Concomitant]
     Dosage: UNK

REACTIONS (4)
  - HEADACHE [None]
  - LACRIMATION INCREASED [None]
  - NAUSEA [None]
  - SKIN EXFOLIATION [None]
